FAERS Safety Report 13899328 (Version 1)
Quarter: 2017Q3

REPORT INFORMATION
  Report Type: Spontaneous
  Country: US (occurrence: US)
  Receive Date: 20170823
  Receipt Date: 20170823
  Transmission Date: 20171127
  Serious: No
  Sender: FDA-Public Use
  Company Number: US-JAZZ-2017-US-008119

PATIENT
  Sex: Female

DRUGS (51)
  1. XYREM [Suspect]
     Active Substance: SODIUM OXYBATE
     Indication: CATAPLEXY
     Dosage: DOSE ADJUSTMENT
     Route: 048
     Dates: start: 201507, end: 201507
  2. NEUPRO [Concomitant]
     Active Substance: ROTIGOTINE
  3. SINGULAIR [Concomitant]
     Active Substance: MONTELUKAST SODIUM
  4. HORIZANT [Concomitant]
     Active Substance: GABAPENTIN ENACARBIL
  5. MAGNESIUM GLUCEPTATE [Concomitant]
     Active Substance: MAGNESIUM GLUCEPTATE
  6. CELEBREX [Concomitant]
     Active Substance: CELECOXIB
  7. CYCLOBENZAPRINE. [Concomitant]
     Active Substance: CYCLOBENZAPRINE
  8. DONNATAL [Concomitant]
     Active Substance: ATROPINE SULFATE\HYOSCYAMINE SULFATE\PHENOBARBITAL\SCOPOLAMINE HYDROBROMIDE
  9. NASONEX [Concomitant]
     Active Substance: MOMETASONE FUROATE
  10. XYREM [Suspect]
     Active Substance: SODIUM OXYBATE
     Indication: NARCOLEPSY
     Dosage: 2.25G, BID
     Route: 048
     Dates: start: 201506, end: 201507
  11. KETOTIFEN FUMARATE. [Concomitant]
     Active Substance: KETOTIFEN FUMARATE
  12. DILAUDID [Concomitant]
     Active Substance: HYDROMORPHONE HYDROCHLORIDE
  13. HYDROCHLOROTHIAZIDE. [Concomitant]
     Active Substance: HYDROCHLOROTHIAZIDE
  14. MODAFINIL. [Concomitant]
     Active Substance: MODAFINIL
  15. PREDNISONE. [Concomitant]
     Active Substance: PREDNISONE
  16. VIVELLE-DOT [Concomitant]
     Active Substance: ESTRADIOL
  17. TYLENOL [Suspect]
     Active Substance: ACETAMINOPHEN
     Indication: PRODUCT USED FOR UNKNOWN INDICATION
  18. XOPENEX HFA [Concomitant]
     Active Substance: LEVALBUTEROL TARTRATE
  19. METFORMIN HCL [Concomitant]
     Active Substance: METFORMIN HYDROCHLORIDE
  20. XOLAIR [Concomitant]
     Active Substance: OMALIZUMAB
  21. ADDERALL [Concomitant]
     Active Substance: AMPHETAMINE ASPARTATE\AMPHETAMINE SULFATE\DEXTROAMPHETAMINE SACCHARATE\DEXTROAMPHETAMINE SULFATE
  22. VAGIFEM [Concomitant]
     Active Substance: ESTRADIOL
  23. XYREM [Suspect]
     Active Substance: SODIUM OXYBATE
     Dosage: 4.5G, BID
     Route: 048
     Dates: start: 201507
  24. METAXALONE. [Concomitant]
     Active Substance: METAXALONE
  25. FENTANYL. [Concomitant]
     Active Substance: FENTANYL
  26. BEPREVE [Concomitant]
     Active Substance: BEPOTASTINE BESILATE
  27. DEXILANT [Concomitant]
     Active Substance: DEXLANSOPRAZOLE
  28. NEXIUM [Concomitant]
     Active Substance: ESOMEPRAZOLE MAGNESIUM
  29. VITAMIN D                          /00107901/ [Concomitant]
     Active Substance: ERGOCALCIFEROL
  30. FERROUS SULFATE. [Concomitant]
     Active Substance: FERROUS SULFATE
  31. OMEGA 3 FISH OIL                   /01334101/ [Concomitant]
     Active Substance: FISH OIL
  32. BUSPIRONE HCL [Concomitant]
     Active Substance: BUSPIRONE HYDROCHLORIDE
  33. CRESTOR [Concomitant]
     Active Substance: ROSUVASTATIN CALCIUM
  34. RITALIN [Concomitant]
     Active Substance: METHYLPHENIDATE HYDROCHLORIDE
  35. BOTOX [Concomitant]
     Active Substance: ONABOTULINUMTOXINA
  36. NORCO [Concomitant]
     Active Substance: ACETAMINOPHEN\HYDROCODONE BITARTRATE
  37. VIIBRYD [Concomitant]
     Active Substance: VILAZODONE HYDROCHLORIDE
  38. CLONAZEPAM. [Concomitant]
     Active Substance: CLONAZEPAM
  39. HYDROXYZINE HCL [Concomitant]
     Active Substance: HYDROXYZINE HYDROCHLORIDE
  40. SPIRONOLACTONE. [Concomitant]
     Active Substance: SPIRONOLACTONE
  41. METHOCARBAMOL. [Concomitant]
     Active Substance: METHOCARBAMOL
  42. DOXYCYCLINE HYCLATE. [Concomitant]
     Active Substance: DOXYCYCLINE HYCLATE
  43. COENZYME Q10 [Concomitant]
     Active Substance: UBIDECARENONE
  44. FIORICET [Concomitant]
     Active Substance: ACETAMINOPHEN\BUTALBITAL\CAFFEINE
  45. LEVOCETIRIZINE [Concomitant]
     Active Substance: LEVOCETIRIZINE
  46. PROVIGIL [Concomitant]
     Active Substance: MODAFINIL
  47. VENTOLIN HFA [Concomitant]
     Active Substance: ALBUTEROL SULFATE
  48. DEXAMETHASONE. [Concomitant]
     Active Substance: DEXAMETHASONE
  49. DULERA [Concomitant]
     Active Substance: FORMOTEROL FUMARATE DIHYDRATE\MOMETASONE FUROATE
  50. FLUCONAZOLE. [Concomitant]
     Active Substance: FLUCONAZOLE
  51. GABAPENTIN. [Concomitant]
     Active Substance: GABAPENTIN

REACTIONS (4)
  - Anxiety [Recovering/Resolving]
  - Migraine [Unknown]
  - Depression [Recovering/Resolving]
  - Medication overuse headache [Unknown]
